FAERS Safety Report 17454818 (Version 1)
Quarter: 2020Q1

REPORT INFORMATION
  Report Type: Spontaneous
  Country: MY (occurrence: MY)
  Receive Date: 20200225
  Receipt Date: 20200225
  Transmission Date: 20200409
  Serious: Yes (Other)
  Sender: FDA-Public Use
  Company Number: MY-ROCHE-2553078

PATIENT
  Age: 71 Year

DRUGS (9)
  1. VINCRISTINE [Suspect]
     Active Substance: VINCRISTINE
     Indication: DIFFUSE LARGE B-CELL LYMPHOMA
     Dosage: PART OF R-CHOP X 6
     Route: 065
     Dates: start: 20190705, end: 20191022
  2. CISPLATIN. [Suspect]
     Active Substance: CISPLATIN
     Indication: DIFFUSE LARGE B-CELL LYMPHOMA
     Dosage: PART OF R-GDP X 3
     Route: 065
     Dates: start: 20191204, end: 20200120
  3. MABTHERA [Suspect]
     Active Substance: RITUXIMAB
     Indication: DIFFUSE LARGE B-CELL LYMPHOMA
     Dosage: PART OF R-CHOP X 6
     Route: 065
     Dates: start: 20190705, end: 20191022
  4. MABTHERA [Suspect]
     Active Substance: RITUXIMAB
     Dosage: PART OF R-GDP X 3
     Route: 065
     Dates: start: 20191204, end: 20200120
  5. GEMCITABINE. [Suspect]
     Active Substance: GEMCITABINE
     Indication: DIFFUSE LARGE B-CELL LYMPHOMA
     Dosage: PART OF R-GDP X 3
     Route: 065
     Dates: start: 20191204, end: 20200120
  6. DOXORUBICIN [Suspect]
     Active Substance: DOXORUBICIN
     Indication: DIFFUSE LARGE B-CELL LYMPHOMA
     Dosage: PART OF R-CHOP X 6
     Route: 065
     Dates: start: 20190705, end: 20191022
  7. DEXAMETHASONE. [Suspect]
     Active Substance: DEXAMETHASONE
     Indication: DIFFUSE LARGE B-CELL LYMPHOMA
     Dosage: PART OF R-GDP X 3
     Route: 065
     Dates: start: 20191204, end: 20200120
  8. CYCLOPHOSPHAMIDE. [Suspect]
     Active Substance: CYCLOPHOSPHAMIDE
     Indication: DIFFUSE LARGE B-CELL LYMPHOMA
     Dosage: PART OF R-CHOP X 6
     Route: 065
     Dates: start: 20190705, end: 20191022
  9. PREDNISOLONE. [Suspect]
     Active Substance: PREDNISOLONE
     Indication: DIFFUSE LARGE B-CELL LYMPHOMA
     Dosage: PART OF R-CHOP X 6
     Route: 065
     Dates: start: 20190705, end: 20191022

REACTIONS (3)
  - Positron emission tomogram abnormal [Unknown]
  - Neutropenic sepsis [Unknown]
  - Off label use [Unknown]

NARRATIVE: CASE EVENT DATE: 20200206
